FAERS Safety Report 5821453-8 (Version None)
Quarter: 2008Q3

REPORT INFORMATION
  Report Type: 
  Country: None (occurrence: None)
  Receive Date: 20080724
  Receipt Date: 20080722
  Transmission Date: 20090109
  Serious: Yes (Other)
  Sender: FDA-Public Use
  Company Number: B0414023A

PATIENT
  Age: 50 Year
  Sex: Male

DRUGS (2)
  1. VALTREX [Suspect]
     Indication: DRUG USE FOR UNKNOWN INDICATION
     Dosage: 1000MG PER DAY
     Route: 048
     Dates: start: 20060225, end: 20060228
  2. ALLOPURINOL [Concomitant]
     Dosage: 100MG FOUR TIMES PER WEEK
     Route: 048

REACTIONS (5)
  - ALTERED STATE OF CONSCIOUSNESS [None]
  - DYSLALIA [None]
  - ENCEPHALOPATHY [None]
  - HALLUCINATION [None]
  - MANIA [None]
